FAERS Safety Report 7254298-5 (Version None)
Quarter: 2011Q1

REPORT INFORMATION
  Report Type: 
  Country: None (occurrence: None)
  Receive Date: 20110129
  Receipt Date: 20100121
  Transmission Date: 20110831
  Serious: No
  Sender: FDA-Public Use
  Company Number: US-ABBOTT-10P-163-0620058-00

PATIENT
  Sex: Female
  Weight: 83.99 kg

DRUGS (8)
  1. LOVAZA [Concomitant]
     Indication: PRODUCT USED FOR UNKNOWN INDICATION
  2. LIPITOR [Concomitant]
     Indication: PRODUCT USED FOR UNKNOWN INDICATION
     Route: 048
  3. BENICAR [Concomitant]
     Indication: HYPERTENSION
     Dosage: 20/12.5MG
     Route: 048
  4. ATENOLOL [Concomitant]
     Indication: HEART RATE DECREASED
     Route: 048
  5. PROTONIX [Concomitant]
     Indication: PRODUCT USED FOR UNKNOWN INDICATION
     Route: 048
  6. HUMIRA [Suspect]
     Indication: CROHN'S DISEASE
     Route: 058
  7. NABUMETONE [Concomitant]
     Indication: ARTHRITIS
     Dosage: TWICE DAILY
     Route: 048
  8. LIALDA [Concomitant]
     Indication: CROHN'S DISEASE
     Route: 048

REACTIONS (3)
  - PSORIASIS [None]
  - PRURITUS [None]
  - GENITAL RASH [None]
